FAERS Safety Report 6035663-0 (Version None)
Quarter: 2009Q1

REPORT INFORMATION
  Report Type: 
  Country: None (occurrence: None)
  Receive Date: 20090113
  Receipt Date: 20090108
  Transmission Date: 20090719
  Serious: Yes (Other)
  Sender: FDA-Public Use
  Company Number: PHHY2009SE00875

PATIENT
  Sex: Male

DRUGS (3)
  1. TEGRETOL [Suspect]
     Indication: EPILEPSY
     Dosage: 200 MG X 2 / DAY
     Dates: start: 20070101
  2. TEGRETOL [Suspect]
     Dosage: 600 MG/DAY
     Dates: start: 20080101
  3. IQ [Concomitant]

REACTIONS (1)
  - TUNNEL VISION [None]
